FAERS Safety Report 5006877-3 (Version None)
Quarter: 2006Q2

REPORT INFORMATION
  Report Type: 
  Country: None (occurrence: None)
  Receive Date: 20060516
  Receipt Date: 20060504
  Transmission Date: 20061013
  Serious: Yes (Death)
  Sender: FDA-Public Use
  Company Number: USA-2006-0024020

PATIENT
  Age: 42 Year
  Sex: Male
  Weight: 78.5 kg

DRUGS (4)
  1. OXYCONTIN [Suspect]
     Indication: PAIN
     Dosage: QID,
  2. METHADONE HCL [Suspect]
     Indication: OFF LABEL USE
  3. AVAPRO [Concomitant]
  4. HYDROCHLOROTHIAZIDE [Concomitant]

REACTIONS (2)
  - OVERDOSE [None]
  - POLYSUBSTANCE ABUSE [None]
